FAERS Safety Report 17736731 (Version 1)
Quarter: 2020Q2

REPORT INFORMATION
  Report Type: Spontaneous
  Country: FR (occurrence: FR)
  Receive Date: 20200501
  Receipt Date: 20200501
  Transmission Date: 20200714
  Serious: Yes (Hospitalization, Other)
  Sender: FDA-Public Use
  Company Number: FR-AUROBINDO-AUR-APL-2020-021547

PATIENT
  Age: 73 Year
  Sex: Male
  Weight: 71 kg

DRUGS (8)
  1. CISPLATIN. [Suspect]
     Active Substance: CISPLATIN
     Indication: B-CELL LYMPHOMA
     Dosage: 190 MILLIGRAM, 1 DOSE 3 WEEKS
     Route: 042
     Dates: start: 20190802
  2. ETOPOSIDE. [Suspect]
     Active Substance: ETOPOSIDE
     Indication: B-CELL LYMPHOMA
     Dosage: 190 MILLIGRAM, TWO TIMES A DAY
     Route: 065
     Dates: start: 20191010
  3. CYTARABINE. [Suspect]
     Active Substance: CYTARABINE
     Dosage: 390 MILLIGRAM, TWO TIMES A DAY
     Route: 042
     Dates: start: 20191010
  4. RITUXIMAB. [Suspect]
     Active Substance: RITUXIMAB
     Indication: B-CELL LYMPHOMA
     Dosage: 740 MILLIGRAM,1 DOSE 3 WEEKS
     Route: 042
     Dates: start: 20190802
  5. CARMUSTINE. [Suspect]
     Active Substance: CARMUSTINE
     Indication: B-CELL LYMPHOMA
     Dosage: 580 MILLIGRAM, ONCE A DAY
     Route: 042
     Dates: start: 20191010
  6. DEXAMETHASONE. [Suspect]
     Active Substance: DEXAMETHASONE
     Indication: B-CELL LYMPHOMA
     Dosage: 160 MILLIGRAM, ONCE A DAY,4 DOSE DAILY PER 21-DAY CYCLE
     Route: 048
     Dates: start: 20190802
  7. CYTARABINE. [Suspect]
     Active Substance: CYTARABINE
     Indication: B-CELL LYMPHOMA
     Dosage: 3800 MILLIGRAM, TWO TIMES A DAY,2 DOSE DAILY PER 21-DAY CYCLE
     Route: 042
     Dates: start: 20190802
  8. MELPHALAN. [Suspect]
     Active Substance: MELPHALAN
     Indication: B-CELL LYMPHOMA
     Dosage: 270 MILLIGRAM, ONCE A DAY
     Route: 042
     Dates: start: 20191014

REACTIONS (2)
  - Bronchopulmonary aspergillosis [Not Recovered/Not Resolved]
  - Off label use [Unknown]

NARRATIVE: CASE EVENT DATE: 20200407
